FAERS Safety Report 21036875 (Version 1)
Quarter: 2022Q3

REPORT INFORMATION
  Report Type: Spontaneous
  Country: JP (occurrence: JP)
  Receive Date: 20220702
  Receipt Date: 20220702
  Transmission Date: 20221027
  Serious: Yes (Hospitalization, Other)
  Sender: FDA-Public Use
  Company Number: JP-Inventia-000561

PATIENT
  Age: 71 Year
  Sex: Female

DRUGS (3)
  1. DULOXETINE [Suspect]
     Active Substance: DULOXETINE
     Indication: Piriformis syndrome
     Dosage: INCREASED FROM 20?MG/DAY TO 40?MG/DAY
  2. PREGABALIN [Concomitant]
     Active Substance: PREGABALIN
     Indication: Piriformis syndrome
  3. CELECOXIB [Concomitant]
     Active Substance: CELECOXIB
     Indication: Piriformis syndrome

REACTIONS (3)
  - Inappropriate antidiuretic hormone secretion [Recovered/Resolved]
  - Suicide attempt [Unknown]
  - Depression [Recovered/Resolved]
